FAERS Safety Report 7272644-3 (Version None)
Quarter: 2010Q4

REPORT INFORMATION
  Report Type: 
  Country: None (occurrence: None)
  Receive Date: 20101214
  Receipt Date: 20090908
  Transmission Date: 20110411
  Serious: Yes (Other)
  Sender: FDA-Public Use
  Company Number: US-SEPTODONT-200900240

PATIENT
  Sex: Male
  Weight: 88.6 kg

DRUGS (2)
  1. SEPTOCAINE [Suspect]
     Indication: LOCAL ANAESTHESIA
     Dosage: CARTRIDGES DENTAL
     Route: 004
     Dates: start: 20081001
  2. SEPTOCAINE [Suspect]
     Indication: LOCAL ANAESTHESIA
     Dosage: CARTRIDGES DENTAL
     Route: 004
     Dates: start: 20081001

REACTIONS (3)
  - AMNESIA [None]
  - DIZZINESS [None]
  - LETHARGY [None]
